FAERS Safety Report 23473001 (Version 1)
Quarter: 2024Q1

REPORT INFORMATION
  Report Type: Spontaneous
  Country: PL (occurrence: PL)
  Receive Date: 20240203
  Receipt Date: 20240203
  Transmission Date: 20240410
  Serious: Yes (Other)
  Sender: FDA-Public Use
  Company Number: PL-NAPPMUNDI-GBR-2023-0111434

PATIENT
  Age: 62 Year
  Sex: Female

DRUGS (6)
  1. DULOXETINE [Suspect]
     Active Substance: DULOXETINE
     Indication: Pain
     Dosage: 60 MG IN THE MORNING ON A REGULAR BASIS
     Route: 065
  2. TRAMADOL HYDROCHLORIDE [Suspect]
     Active Substance: TRAMADOL HYDROCHLORIDE
     Indication: Arthralgia
     Dosage: 150 MILLIGRAM IN THE MORNING
     Route: 065
  3. TRAMADOL HYDROCHLORIDE [Suspect]
     Active Substance: TRAMADOL HYDROCHLORIDE
     Dosage: 100 MILLIGRAM IN THE EVENING
     Route: 065
  4. ACETAMINOPHEN\TRAMADOL [Suspect]
     Active Substance: ACETAMINOPHEN\TRAMADOL
     Indication: Arthralgia
     Dosage: 37.5/325 MILLIGRAM UP TO 3 TIMES DAY
     Route: 065
  5. ACETAMINOPHEN\TRAMADOL [Suspect]
     Active Substance: ACETAMINOPHEN\TRAMADOL
     Dosage: 1 DOSAGE FORM, 3 TIMES A DAY
     Route: 065
  6. DICLOFENAC SODIUM\OMEPRAZOLE [Concomitant]
     Active Substance: DICLOFENAC SODIUM\OMEPRAZOLE
     Indication: Product used for unknown indication
     Dosage: 1 TIME 1 TABLET PER DAY
     Route: 065

REACTIONS (1)
  - Osteoarthritis [Recovering/Resolving]
